FAERS Safety Report 4806947-6 (Version None)
Quarter: 2005Q4

REPORT INFORMATION
  Report Type: 
  Country: None (occurrence: None)
  Receive Date: 20051019
  Receipt Date: 20051004
  Transmission Date: 20060501
  Serious: Yes (Hospitalization)
  Sender: FDA-Public Use
  Company Number: AU_051009017

PATIENT
  Age: 60 Year
  Sex: Male

DRUGS (2)
  1. GEMZAR [Suspect]
     Indication: NON-SMALL CELL LUNG CANCER STAGE IIIB
  2. CARBOPLATIN [Concomitant]

REACTIONS (1)
  - EJECTION FRACTION DECREASED [None]
